FAERS Safety Report 14273551 (Version 1)
Quarter: 2017Q4

REPORT INFORMATION
  Report Type: Report from Study
  Country: JP (occurrence: JP)
  Receive Date: 20171212
  Receipt Date: 20171212
  Transmission Date: 20180321
  Serious: Yes (Hospitalization)
  Sender: FDA-Public Use
  Company Number: JP-EISAI MEDICAL RESEARCH-EC-2017-033937

PATIENT
  Age: 33 Year
  Sex: Male

DRUGS (8)
  1. TOPINA [Concomitant]
     Active Substance: TOPIRAMATE
  2. MYSTAN [Concomitant]
     Active Substance: CLOBAZAM
  3. FYCOMPA [Suspect]
     Active Substance: PERAMPANEL
     Route: 048
     Dates: start: 20170707, end: 20170927
  4. FYCOMPA [Suspect]
     Active Substance: PERAMPANEL
     Indication: PARTIAL SEIZURES
     Route: 048
     Dates: start: 20170520, end: 20170601
  5. FYCOMPA [Suspect]
     Active Substance: PERAMPANEL
     Route: 048
     Dates: start: 20170602, end: 20170706
  6. DEPAKENE [Concomitant]
     Active Substance: VALPROIC ACID
  7. RIVOTRIL [Concomitant]
     Active Substance: CLONAZEPAM
  8. RIVOTRIL [Concomitant]
     Active Substance: CLONAZEPAM

REACTIONS (1)
  - Confusional state [Recovered/Resolved]

NARRATIVE: CASE EVENT DATE: 20170919
